FAERS Safety Report 4309350-0 (Version None)
Quarter: 2004Q1

REPORT INFORMATION
  Report Type: 
  Country: None (occurrence: None)
  Receive Date: 20040302
  Receipt Date: 20020606
  Transmission Date: 20041129
  Serious: Yes (Disabling, Other)
  Sender: FDA-Public Use
  Company Number: WAES 0206AUS00044

PATIENT
  Age: 79 Year
  Sex: Female
  Weight: 59 kg

DRUGS (3)
  1. ZOCOR [Suspect]
     Indication: LIPIDS INCREASED
     Route: 048
     Dates: start: 20020101, end: 20020515
  2. ZOCOR [Suspect]
     Route: 048
     Dates: end: 20020101
  3. ZOCOR [Suspect]
     Route: 048
     Dates: start: 20020101, end: 20020101

REACTIONS (6)
  - BLOOD CREATINE PHOSPHOKINASE INCREASED [None]
  - DIFFICULTY IN WALKING [None]
  - MUSCLE CRAMP [None]
  - MUSCLE RIGIDITY [None]
  - MYALGIA [None]
  - MYOCARDIAL INFARCTION [None]
